FAERS Safety Report 14421795 (Version 2)
Quarter: 2018Q1

REPORT INFORMATION
  Report Type: Report from Study
  Country: KR (occurrence: KR)
  Receive Date: 20180122
  Receipt Date: 20180124
  Transmission Date: 20180509
  Serious: Yes (Death)
  Sender: FDA-Public Use
  Company Number: KR-AMGEN-KORNI2018007908

PATIENT
  Age: 79 Year
  Sex: Male
  Weight: 54 kg

DRUGS (14)
  1. BONKY [Concomitant]
     Indication: OSTEOPOROSIS
     Dosage: 0.25 MUG, QD
     Route: 048
     Dates: start: 20160603
  2. DICAMAX [Concomitant]
     Indication: VITAMIN D DEFICIENCY
     Dosage: 1 DF, QD
     Route: 048
     Dates: start: 20170630
  3. HARNAL [Concomitant]
     Active Substance: TAMSULOSIN HYDROCHLORIDE
     Indication: BENIGN PROSTATIC HYPERPLASIA
     Dosage: 0.2 MG, QD
     Route: 048
     Dates: start: 20151113
  4. BUP-4 [Concomitant]
     Active Substance: PROPIVERINE
     Indication: NOCTURIA
     Dosage: 10 MG, QD
     Route: 048
     Dates: start: 20151113
  5. ACERTIL [Concomitant]
     Active Substance: PERINDOPRIL ARGININE
     Indication: HYPERTENSION
     Dosage: 4 MG, QD
     Route: 048
     Dates: start: 20130917
  6. ATORVA [Concomitant]
     Indication: CORONARY ARTERY DISEASE
     Dosage: 20 MG, QD
     Route: 048
     Dates: start: 20140718
  7. DENOSUMAB [Suspect]
     Active Substance: DENOSUMAB
     Indication: OSTEOPOROSIS
     Dosage: 60 MG, Q6MO
     Route: 058
     Dates: start: 20170630, end: 20170630
  8. VITAMIN D [Concomitant]
     Active Substance: CHOLECALCIFEROL
     Dosage: UNK
  9. FEROBA YOU [Concomitant]
     Indication: ANAEMIA PROPHYLAXIS
     Dosage: 256 MG, QD
     Route: 048
     Dates: start: 20130913
  10. LASIX [Concomitant]
     Active Substance: FUROSEMIDE
     Indication: CHRONIC KIDNEY DISEASE
     Dosage: 20 MG, QD
     Route: 048
     Dates: start: 20130930
  11. NEBILET [Concomitant]
     Active Substance: NEBIVOLOL
     Indication: HYPERTENSION
     Dosage: 2.5 MG, QD
     Route: 048
     Dates: start: 20131031
  12. CALCIUM [Concomitant]
     Active Substance: CALCIUM
     Dosage: UNK
  13. ALBIS [Concomitant]
     Active Substance: BISMUTH SUBCITRATE\RANITIDINE HYDROCHLORIDE\SUCRALFATE
     Indication: GASTRIC DISORDER
     Dosage: 1 DF, QD
     Route: 048
     Dates: start: 20131230
  14. RENALMIN [Concomitant]
     Indication: CHRONIC KIDNEY DISEASE
     Dosage: 1 DF, QD
     Route: 048
     Dates: start: 20140718

REACTIONS (1)
  - Death [Fatal]

NARRATIVE: CASE EVENT DATE: 201710
